FAERS Safety Report 7582348-5 (Version None)
Quarter: 2011Q2

REPORT INFORMATION
  Report Type: 
  Country: None (occurrence: None)
  Receive Date: 20110527
  Receipt Date: 20110502
  Transmission Date: 20111010
  Serious: Yes (Hospitalization, Other)
  Sender: FDA-Public Use
  Company Number: US200908005973

PATIENT
  Age: 59 Year
  Sex: Female
  Weight: 85.3 kg

DRUGS (14)
  1. DIOVAN [Concomitant]
  2. PROCARDIA XL [Concomitant]
  3. BYETTA [Suspect]
     Dosage: 5 UG, 2/D
     Dates: start: 20050901, end: 20071007
  4. ZETIA [Concomitant]
  5. CENTRUM SILVER (ASCORBIC ACID, CALCIUM, MINERAL NOS, RETINOL, TOCOPHER [Concomitant]
  6. TYLENOL W/ CODEINE NO. 3 [Concomitant]
  7. CLONIDINE [Concomitant]
  8. TOPROL-XL [Concomitant]
  9. HYDROCHLOROTHIAZIDE [Concomitant]
  10. METFORMIN HCL [Concomitant]
  11. VYTORIN [Concomitant]
  12. EXENATIDE PEN, DISPOSABLE DEVICE (EXENATIDE PEN) PEN, DISPOSABLE [Concomitant]
  13. ASPIRIN [Concomitant]
  14. GLYBURIDE AND METFORMIN HCL [Concomitant]

REACTIONS (1)
  - PANCREATITIS ACUTE [None]
